FAERS Safety Report 7296789-7 (Version None)
Quarter: 2011Q1

REPORT INFORMATION
  Report Type: 
  Country: None (occurrence: None)
  Receive Date: 20110216
  Receipt Date: 20110209
  Transmission Date: 20110831
  Serious: Yes (Other)
  Sender: FDA-Public Use
  Company Number: B0699540A

PATIENT
  Age: 18 Year
  Sex: Female

DRUGS (3)
  1. MEDICON [Concomitant]
     Route: 048
  2. RELENZA [Suspect]
     Indication: INFLUENZA
     Route: 055
     Dates: start: 20110204
  3. MUCOSOLVAN [Concomitant]
     Route: 048

REACTIONS (3)
  - ASPARTATE AMINOTRANSFERASE INCREASED [None]
  - BLOOD CREATINE PHOSPHOKINASE INCREASED [None]
  - ARTHRALGIA [None]
